FAERS Safety Report 10414594 (Version 2)
Quarter: 2014Q3

REPORT INFORMATION
  Report Type: Spontaneous
  Country: US (occurrence: US)
  Receive Date: 20140828
  Receipt Date: 20140909
  Transmission Date: 20150326
  Serious: No
  Sender: FDA-Public Use
  Company Number: US-BIOGENIDEC-2014BI085045

PATIENT
  Age: 56 Year
  Sex: Female

DRUGS (4)
  1. TECFIDERA [Suspect]
     Active Substance: DIMETHYL FUMARATE
     Indication: RELAPSING-REMITTING MULTIPLE SCLEROSIS
     Route: 048
     Dates: start: 20140723, end: 20140821
  2. TECFIDERA [Suspect]
     Active Substance: DIMETHYL FUMARATE
     Indication: RELAPSING-REMITTING MULTIPLE SCLEROSIS
     Dates: start: 20140716
  3. TYLENOL [Concomitant]
     Active Substance: ACETAMINOPHEN
  4. HYDROCODONE [Concomitant]
     Active Substance: HYDROCODONE

REACTIONS (16)
  - Constipation [Not Recovered/Not Resolved]
  - Muscle spasms [Unknown]
  - Abdominal distension [Unknown]
  - Burning sensation [Not Recovered/Not Resolved]
  - Dizziness [Unknown]
  - Abdominal rigidity [Unknown]
  - Feeling cold [Unknown]
  - Hot flush [Unknown]
  - Hyperhidrosis [Unknown]
  - Hyperphagia [Unknown]
  - Gait disturbance [Unknown]
  - Feeling abnormal [Not Recovered/Not Resolved]
  - Dehydration [Unknown]
  - Skin warm [Not Recovered/Not Resolved]
  - Nausea [Not Recovered/Not Resolved]
  - Vomiting [Not Recovered/Not Resolved]

NARRATIVE: CASE EVENT DATE: 20140723
